FAERS Safety Report 7824949-2 (Version None)
Quarter: 2011Q4

REPORT INFORMATION
  Report Type: 
  Country: None (occurrence: None)
  Receive Date: 20111019
  Receipt Date: 20110307
  Transmission Date: 20120403
  Serious: No
  Sender: FDA-Public Use
  Company Number: US-BRISTOL-MYERS SQUIBB COMPANY-15592629

PATIENT
  Age: 81 Year
  Sex: Male
  Weight: 95 kg

DRUGS (1)
  1. AVALIDE [Suspect]
     Dosage: TAKING AT NIGHT,FOR THE LAST 3-4 YRS

REACTIONS (1)
  - MYDRIASIS [None]
